FAERS Safety Report 5054219-X (Version None)
Quarter: 2006Q3

REPORT INFORMATION
  Report Type: 
  Country: None (occurrence: None)
  Receive Date: 20060713
  Receipt Date: 20060630
  Transmission Date: 20061208
  Serious: Yes (Other)
  Sender: FDA-Public Use
  Company Number: S06-HRV-02674-01

PATIENT
  Age: 33 Year
  Sex: Male

DRUGS (4)
  1. ESCITALOPRAM OXALATE [Suspect]
     Dosage: 5 MG QD PO
     Route: 048
     Dates: start: 20060329
  2. SALOFALK (MESALAZINE) [Concomitant]
  3. IMURAN [Concomitant]
  4. DECORTIN (PREDNISONE) [Concomitant]

REACTIONS (3)
  - LIBIDO INCREASED [None]
  - MALE ORGASMIC DISORDER [None]
  - SEXUAL DYSFUNCTION [None]
